FAERS Safety Report 18174267 (Version 1)
Quarter: 2020Q3

REPORT INFORMATION
  Report Type: Report from Study
  Country: GB (occurrence: GB)
  Receive Date: 20200820
  Receipt Date: 20200820
  Transmission Date: 20201103
  Serious: Yes (Other)
  Sender: FDA-Public Use
  Company Number: NVSC2020GB228864

PATIENT
  Sex: Female

DRUGS (1)
  1. HYRIMOZ [Suspect]
     Active Substance: ADALIMUMAB-ADAZ
     Indication: CROHN^S DISEASE
     Dosage: UNK(40MG/0.8M)(FORTNIGHTLY)
     Route: 058
     Dates: start: 20200715

REACTIONS (6)
  - Angina pectoris [Unknown]
  - Haematochezia [Unknown]
  - Abdominal pain lower [Unknown]
  - Fatigue [Not Recovered/Not Resolved]
  - Mucous stools [Unknown]
  - Arthralgia [Not Recovered/Not Resolved]
